FAERS Safety Report 5066521-6 (Version None)
Quarter: 2006Q3

REPORT INFORMATION
  Report Type: 
  Country: None (occurrence: None)
  Receive Date: 20060731
  Receipt Date: 20060731
  Transmission Date: 20061208
  Serious: Yes (Hospitalization)
  Sender: FDA-Public Use
  Company Number: None

PATIENT
  Age: 60 Year
  Sex: Female
  Weight: 72.5755 kg

DRUGS (3)
  1. TARCEVA [Suspect]
     Indication: SQUAMOUS CELL CARCINOMA
     Dosage: 150 MG PO  QD
     Route: 048
     Dates: start: 20060719
  2. INTRA ARTERIAL CISPLATIN [Concomitant]
  3. RADIATION THERAPY [Concomitant]

REACTIONS (5)
  - COUGH [None]
  - DYSPHAGIA [None]
  - DYSPNOEA [None]
  - THROAT IRRITATION [None]
  - WEIGHT DECREASED [None]
